FAERS Safety Report 8179231 (Version 12)
Quarter: 2012Q4

REPORT INFORMATION
  Report Type: 
  Country: US (occurrence: US)
  Receive Date: 20111013
  Receipt Date: 20121022
  Transmission Date: 20130627
  Serious: Yes (Other)
  Sender: FDA-Public Use
  Company Number: PHEH2011US06381

PATIENT
  Age: 8 Year
  Sex: Female
  Weight: 36.3 kg

DRUGS (7)
  1. AFINITOR [Suspect]
     Indication: ASTROCYTOMA, LOW GRADE
     Dosage: 2.5 mg, daily
     Route: 048
     Dates: start: 20110916
  2. AFINITOR [Suspect]
     Dosage: 7.5 mg, daily
     Route: 048
     Dates: start: 20120911
  3. CLONAZEPAM [Concomitant]
     Indication: CONVULSION
     Dosage: 0.5 mg, QD
     Route: 048
  4. CLONAZEPAM [Concomitant]
     Dosage: 1 mg, PRN
     Route: 048
  5. CLONAZEPAM [Concomitant]
     Dosage: 2 mg, QHS
     Route: 048
  6. ZOFRAN [Concomitant]
  7. KLONOPIN [Concomitant]
     Indication: CONVULSION
     Dosage: 0.5 mg in the mrg, 1 mg in the afternoon and night
     Route: 048
     Dates: start: 20120312

REACTIONS (6)
  - Abnormal behaviour [Not Recovered/Not Resolved]
  - Convulsion [Recovered/Resolved]
  - Muscle tightness [Recovered/Resolved]
  - Confusional state [Recovered/Resolved]
  - Headache [Not Recovered/Not Resolved]
  - Drug level below therapeutic [Recovered/Resolved]
